FAERS Safety Report 8190044-9 (Version None)
Quarter: 2012Q1

REPORT INFORMATION
  Report Type: 
  Country: None (occurrence: None)
  Receive Date: 20120307
  Receipt Date: 20120228
  Transmission Date: 20120608
  Serious: Yes (Life-Threatening, Hospitalization)
  Sender: FDA-Public Use
  Company Number: FR-SANOFI-AVENTIS-2011SA036046

PATIENT
  Age: 56 Year
  Sex: Male

DRUGS (12)
  1. ACTOS [Suspect]
     Route: 048
     Dates: start: 20060301, end: 20100201
  2. DIAMICRON [Suspect]
     Route: 048
  3. METFORMIN HCL [Suspect]
     Route: 065
  4. KAYEXALATE [Suspect]
     Indication: HYPERKALAEMIA
     Route: 048
     Dates: start: 20100501
  5. JANUVIA [Suspect]
     Route: 048
     Dates: start: 20091001
  6. ALLOPURINOL [Suspect]
     Indication: HYPERURICAEMIA
     Route: 048
  7. PERINDOPRIL ERBUMINE [Suspect]
     Route: 048
     Dates: start: 20091201
  8. MINIRIN [Suspect]
     Indication: DIABETES INSIPIDUS
     Route: 048
     Dates: start: 19950101
  9. BISOPROLOL FUMARATE [Suspect]
     Route: 048
     Dates: start: 20091201
  10. ASPIRIN [Suspect]
     Route: 048
     Dates: start: 20091201
  11. PRAZOSIN HCL [Suspect]
     Route: 048
     Dates: end: 20100201
  12. FENOFIBRATE [Suspect]
     Indication: HYPERTRIGLYCERIDAEMIA
     Route: 048

REACTIONS (1)
  - BLADDER TRANSITIONAL CELL CARCINOMA STAGE II [None]
